FAERS Safety Report 9768825 (Version 1)
Quarter: 2013Q4

REPORT INFORMATION
  Report Type: Spontaneous
  Country: BR (occurrence: BR)
  Receive Date: 20131218
  Receipt Date: 20131218
  Transmission Date: 20140711
  Serious: Yes (Other)
  Sender: FDA-Public Use
  Company Number: BR-ROCHE-1318432

PATIENT
  Sex: Male
  Weight: 82 kg

DRUGS (5)
  1. MABTHERA [Suspect]
     Indication: RHEUMATOID ARTHRITIS
     Route: 065
  2. ENALAPRIL [Concomitant]
     Indication: BLOOD PRESSURE ABNORMAL
     Route: 065
  3. NATRILIX [Concomitant]
     Indication: BLOOD PRESSURE ABNORMAL
     Route: 065
  4. SELOZOK [Concomitant]
     Indication: BLOOD PRESSURE ABNORMAL
     Route: 065
  5. GABAPENTIN [Concomitant]
     Route: 065

REACTIONS (1)
  - Dermatitis bullous [Not Recovered/Not Resolved]
